FAERS Safety Report 7919914-0 (Version None)
Quarter: 2011Q4

REPORT INFORMATION
  Report Type: 
  Country: None (occurrence: None)
  Receive Date: 20111115
  Receipt Date: 20111108
  Transmission Date: 20120403
  Serious: Yes (Life-Threatening)
  Sender: FDA-Public Use
  Company Number: GER/GER/11/0021870

PATIENT
  Age: 27 Year
  Sex: Male
  Weight: 106 kg

DRUGS (1)
  1. PANTOPRAZOLE [Suspect]
     Indication: GASTROOESOPHAGEAL REFLUX DISEASE
     Dosage: 20 MG, 1-0-0-0, ORAL
     Route: 048
     Dates: end: 20110301

REACTIONS (1)
  - LARYNGEAL OEDEMA [None]
